FAERS Safety Report 20232225 (Version 4)
Quarter: 2022Q1

REPORT INFORMATION
  Report Type: Spontaneous
  Country: FR (occurrence: FR)
  Receive Date: 20211227
  Receipt Date: 20220316
  Transmission Date: 20220423
  Serious: Yes (Death, Congenital Anomaly)
  Sender: FDA-Public Use
  Company Number: None

PATIENT
  Sex: Male

DRUGS (2)
  1. TAFINLAR [Suspect]
     Active Substance: DABRAFENIB MESYLATE
     Indication: Foetal exposure during pregnancy
     Dosage: MATERNAL DOSE: 4 DOSAGE FORM, QD
     Route: 064
     Dates: start: 20190429
  2. TAFINLAR [Suspect]
     Active Substance: DABRAFENIB MESYLATE
     Dosage: MATERNAL DOSE: 150 MG, QD
     Route: 064
     Dates: start: 2021

REACTIONS (2)
  - Dandy-Walker syndrome [Fatal]
  - Urinary tract malformation [Fatal]

NARRATIVE: CASE EVENT DATE: 20210101
